FAERS Safety Report 5913363-2 (Version None)
Quarter: 2008Q4

REPORT INFORMATION
  Report Type: 
  Country: None (occurrence: None)
  Receive Date: 20081009
  Receipt Date: 20081002
  Transmission Date: 20090506
  Serious: Yes (Hospitalization, Other)
  Sender: FDA-Public Use
  Company Number: PHHY2008BR23522

PATIENT
  Age: 58 Year
  Sex: Female
  Weight: 57 kg

DRUGS (3)
  1. FORADIL [Suspect]
     Indication: ASTHMA
     Dosage: TWICE A DAY
     Dates: start: 19880101
  2. FLIXOTIDE [Suspect]
     Indication: ASTHMA
     Dosage: TWICE  A DAY
     Dates: start: 20040101
  3. DESELEX [Suspect]
     Dosage: 5 MG
     Dates: start: 20070101

REACTIONS (19)
  - ABDOMINAL PAIN [None]
  - AMOEBIASIS [None]
  - BLOOD CORTISOL DECREASED [None]
  - BLOOD PROLACTIN INCREASED [None]
  - DENGUE FEVER [None]
  - DIARRHOEA [None]
  - DIZZINESS [None]
  - FALL [None]
  - GALLBLADDER DISORDER [None]
  - GALLBLADDER OPERATION [None]
  - GASTRITIS [None]
  - HEPATITIS [None]
  - NASAL CONGESTION [None]
  - NAUSEA [None]
  - OROPHARYNGEAL PAIN [None]
  - PANCREATIC DUCT OBSTRUCTION [None]
  - PANCREATITIS [None]
  - PAROSMIA [None]
  - TRANSAMINASES INCREASED [None]
